FAERS Safety Report 24679469 (Version 4)
Quarter: 2024Q4

REPORT INFORMATION
  Report Type: Spontaneous
  Country: US (occurrence: US)
  Receive Date: 20241129
  Receipt Date: 20241230
  Transmission Date: 20250114
  Serious: No
  Sender: AMGEN
  Company Number: US-AMGEN-USASP2024227076

PATIENT
  Age: 48 Year
  Sex: Female

DRUGS (2)
  1. NEULASTA [Suspect]
     Active Substance: PEGFILGRASTIM
     Indication: Prophylaxis
     Dosage: UNK, AFTER CHEMO
     Route: 065
     Dates: start: 20241114
  2. NEULASTA [Suspect]
     Active Substance: PEGFILGRASTIM
     Indication: Neoplasm malignant

REACTIONS (3)
  - Accidental exposure to product [Unknown]
  - Device physical property issue [Unknown]
  - Incorrect disposal of product [Unknown]

NARRATIVE: CASE EVENT DATE: 20241114
